FAERS Safety Report 10162417 (Version 1)
Quarter: 2014Q2

REPORT INFORMATION
  Report Type: Spontaneous
  Country: US (occurrence: US)
  Receive Date: 20140509
  Receipt Date: 20140509
  Transmission Date: 20141212
  Serious: No
  Sender: FDA-Public Use
  Company Number: US-GLAXOSMITHKLINE-A1066588A

PATIENT
  Age: 38 Year
  Sex: Female

DRUGS (9)
  1. BACTROBAN [Suspect]
     Indication: PRODUCT USED FOR UNKNOWN INDICATION
     Route: 065
     Dates: start: 20130912
  2. ADVAIR HFA [Suspect]
     Indication: PRODUCT USED FOR UNKNOWN INDICATION
     Route: 065
     Dates: start: 20130103
  3. VENTOLIN [Suspect]
     Indication: PRODUCT USED FOR UNKNOWN INDICATION
     Dosage: 90MCG UNKNOWN
     Route: 065
     Dates: start: 20120204
  4. FLOVENT [Suspect]
     Indication: PRODUCT USED FOR UNKNOWN INDICATION
     Route: 055
     Dates: start: 20120111
  5. CLINDAMYCIN [Suspect]
  6. PENICILLIN [Suspect]
  7. PREDNISONE [Suspect]
  8. SULFUR [Suspect]
  9. PETROLEUM JELLY [Suspect]

REACTIONS (2)
  - Ill-defined disorder [Unknown]
  - Drug hypersensitivity [Unknown]
